FAERS Safety Report 21202353 (Version 1)
Quarter: 2022Q3

REPORT INFORMATION
  Report Type: Spontaneous
  Country: US (occurrence: US)
  Receive Date: 20220811
  Receipt Date: 20220811
  Transmission Date: 20221027
  Serious: No
  Sender: FDA-Public Use
  Company Number: US-PFIZER INC-202201051304

PATIENT
  Age: 82 Year
  Sex: Female
  Weight: 49.887 kg

DRUGS (2)
  1. IBRANCE [Suspect]
     Active Substance: PALBOCICLIB
     Indication: Neoplasm malignant
     Dosage: 200 MG
     Dates: start: 2022
  2. IBRANCE [Suspect]
     Active Substance: PALBOCICLIB
     Dosage: TAKE ONE TABLET BY MOUTH ON DAYS 1-21 OF EACH 28-DAY CYCLE
     Route: 048
     Dates: start: 2022

REACTIONS (3)
  - Retching [Unknown]
  - Vomiting [Unknown]
  - Body height decreased [Unknown]

NARRATIVE: CASE EVENT DATE: 20220101
